FAERS Safety Report 5479970-9 (Version None)
Quarter: 2007Q4

REPORT INFORMATION
  Report Type: 
  Country: None (occurrence: None)
  Receive Date: 20071008
  Receipt Date: 20070928
  Transmission Date: 20080405
  Serious: Yes (Hospitalization)
  Sender: FDA-Public Use
  Company Number: US-MERCK-0710USA00210

PATIENT
  Age: 87 Year
  Sex: Female

DRUGS (4)
  1. COSOPT [Suspect]
     Indication: OPEN ANGLE GLAUCOMA
     Route: 047
     Dates: start: 20061001, end: 20070901
  2. ALPHAGAN P [Concomitant]
     Indication: OPEN ANGLE GLAUCOMA
     Route: 065
  3. LUMIGAN [Concomitant]
     Indication: OPEN ANGLE GLAUCOMA
     Route: 065
  4. [THERAPY UNSPECIFIED] [Concomitant]
     Route: 065

REACTIONS (2)
  - CARDIAC DISORDER [None]
  - VITAMIN B12 DEFICIENCY [None]
